FAERS Safety Report 26127226 (Version 2)
Quarter: 2025Q4

REPORT INFORMATION
  Report Type: Report from Study
  Country: US (occurrence: None)
  Receive Date: 20251205
  Receipt Date: 20251230
  Transmission Date: 20260117
  Serious: Yes (Other)
  Sender: UCB
  Company Number: US-UCBSA-2025076443

PATIENT
  Age: 4 Year

DRUGS (3)
  1. FENFLURAMINE [Suspect]
     Active Substance: FENFLURAMINE
     Indication: Severe myoclonic epilepsy of infancy
     Dosage: 1.6 MILLILITER, 2X/DAY (BID)
  2. FENFLURAMINE [Suspect]
     Active Substance: FENFLURAMINE
     Dosage: 1.6 MILLILITER, 2X/DAY (BID)
     Route: 061
  3. DEPAKOTE [Concomitant]
     Active Substance: DIVALPROEX SODIUM
     Indication: Product used for unknown indication
     Dosage: TITRATED OFF

REACTIONS (1)
  - Seizure [Not Recovered/Not Resolved]
